FAERS Safety Report 8551397-2 (Version None)
Quarter: 2012Q3

REPORT INFORMATION
  Report Type: 
  Country: None (occurrence: None)
  Receive Date: 20120730
  Receipt Date: 20120716
  Transmission Date: 20120928
  Serious: Yes (Hospitalization)
  Sender: FDA-Public Use
  Company Number: US-VALEANT-2012VX003214

PATIENT
  Age: 9 Year
  Sex: Male

DRUGS (9)
  1. CARBIDOPA [Suspect]
     Route: 048
  2. LEVODOPA [Suspect]
     Indication: DYSTONIA
     Route: 065
  3. LEVODOPA [Suspect]
     Route: 065
  4. BACLOFEN [Suspect]
     Route: 048
  5. LEVODOPA [Suspect]
     Route: 065
  6. CARBIDOPA [Suspect]
     Indication: DYSTONIA
     Route: 048
  7. CLONAZEPAM [Suspect]
     Route: 065
  8. CLONAZEPAM [Suspect]
     Route: 065
  9. BACLOFEN [Suspect]
     Route: 048

REACTIONS (2)
  - ILEUS [None]
  - NEUROLEPTIC MALIGNANT SYNDROME [None]
